FAERS Safety Report 8815349 (Version 1)
Quarter: 2012Q4

REPORT INFORMATION
  Report Type: 
  Country: US (occurrence: US)
  Receive Date: 20120928
  Receipt Date: 20120928
  Transmission Date: 20130627
  Serious: Yes (Other)
  Sender: FDA-Public Use
  Company Number: US-ASTRAZENECA-2012SE73302

PATIENT
  Age: 78 Year
  Sex: Male
  Weight: 85.3 kg

DRUGS (1)
  1. NEXIUM [Suspect]
     Indication: GASTROOESOPHAGEAL REFLUX DISEASE
     Route: 048

REACTIONS (5)
  - Precancerous cells present [Recovered/Resolved]
  - Hypoacusis [Unknown]
  - Speech disorder [Unknown]
  - Blood pressure increased [Unknown]
  - Off label use [Unknown]
